FAERS Safety Report 7987878-X (Version None)
Quarter: 2011Q4

REPORT INFORMATION
  Report Type: 
  Country: None (occurrence: None)
  Receive Date: 20111216
  Receipt Date: 20101111
  Transmission Date: 20120403
  Serious: No
  Sender: FDA-Public Use
  Company Number: US-BRISTOL-MYERS SQUIBB COMPANY-15380405

PATIENT
  Age: 16 Year
  Sex: Male

DRUGS (2)
  1. VITAMIN TAB [Concomitant]
  2. ABILIFY [Suspect]
     Dosage: DOSE INCREASED TO 5MG DAILY AFTER 1 WEEK
     Dates: start: 20101101

REACTIONS (4)
  - PALPITATIONS [None]
  - NAUSEA [None]
  - MUSCLE TWITCHING [None]
  - VOMITING [None]
